FAERS Safety Report 8202073-7 (Version None)
Quarter: 2012Q1

REPORT INFORMATION
  Report Type: 
  Country: None (occurrence: None)
  Receive Date: 20120312
  Receipt Date: 20120308
  Transmission Date: 20120608
  Serious: Yes (Disabling)
  Sender: FDA-Public Use
  Company Number: US-MERCK-1203USA01076

PATIENT
  Age: 63 Year
  Sex: Female

DRUGS (6)
  1. ALENDRONATE SODIUM [Suspect]
     Route: 065
     Dates: start: 20100401
  2. FOSAMAX [Suspect]
     Route: 048
     Dates: start: 20010101, end: 20080201
  3. ALENDRONATE SODIUM [Suspect]
     Route: 065
     Dates: start: 20091101, end: 20100101
  4. ALENDRONATE SODIUM [Suspect]
     Route: 065
     Dates: start: 20080901, end: 20091001
  5. ALENDRONATE SODIUM [Suspect]
     Route: 065
     Dates: start: 20100201, end: 20100301
  6. FOSAMAX [Suspect]
     Route: 048
     Dates: start: 20080201, end: 20080801

REACTIONS (2)
  - FEMUR FRACTURE [None]
  - LOW TURNOVER OSTEOPATHY [None]
